FAERS Safety Report 10275294 (Version 1)
Quarter: 2014Q3

REPORT INFORMATION
  Report Type: Not Available
  Country: US (occurrence: US)
  Receive Date: 20140703
  Receipt Date: 20140703
  Transmission Date: 20150326
  Serious: No
  Sender: FDA-Public Use
  Company Number: US-LUPIN PHARMACEUTICALS INC.-E2B_00002036

PATIENT
  Sex: Female

DRUGS (1)
  1. ESCITALOPRAM TABLETS USP 5MG [Suspect]
     Active Substance: ESCITALOPRAM OXALATE
     Indication: ANXIETY

REACTIONS (3)
  - Disturbance in attention [Not Recovered/Not Resolved]
  - Depersonalisation [Not Recovered/Not Resolved]
  - Memory impairment [Not Recovered/Not Resolved]
